FAERS Safety Report 6585465-1 (Version None)
Quarter: 2010Q1

REPORT INFORMATION
  Report Type: 
  Country: None (occurrence: None)
  Receive Date: 20100217
  Receipt Date: 20100205
  Transmission Date: 20100710
  Serious: Yes (Hospitalization)
  Sender: FDA-Public Use
  Company Number: FR-GENENTECH-298032

PATIENT
  Sex: Female
  Weight: 95 kg

DRUGS (7)
  1. RITUXIMAB [Suspect]
     Indication: NON-HODGKIN'S LYMPHOMA
     Dosage: 760 MG, UNK
     Route: 042
     Dates: start: 20090924
  2. CYCLOPHOSPHAMIDE [Suspect]
     Indication: NON-HODGKIN'S LYMPHOMA
     Dosage: 2435 MG, UNK
     Route: 042
     Dates: start: 20090924, end: 20091022
  3. DOXORUBICIN [Suspect]
     Indication: NON-HODGKIN'S LYMPHOMA
     Dosage: 152 MG, UNK
     Route: 042
     Dates: start: 20090924
  4. VINCRISTINE [Suspect]
     Indication: NON-HODGKIN'S LYMPHOMA
     Dosage: 4 MG, UNK
     Route: 042
     Dates: start: 20090924
  5. PREDNISONE [Suspect]
     Indication: NON-HODGKIN'S LYMPHOMA
     Dosage: 116 MG, UNK
     Route: 048
     Dates: start: 20090924
  6. BLEOMYCIN SULFATE [Suspect]
     Indication: NON-HODGKIN'S LYMPHOMA
     Dosage: 10 MG, UNK
     Route: 042
     Dates: start: 20090924
  7. METHOTREXATE [Suspect]
     Indication: NON-HODGKIN'S LYMPHOMA
     Dosage: 15 MG, UNK
     Route: 050
     Dates: start: 20090925

REACTIONS (3)
  - GENERAL PHYSICAL HEALTH DETERIORATION [None]
  - NEUTROPENIC INFECTION [None]
  - POST LUMBAR PUNCTURE SYNDROME [None]
